FAERS Safety Report 8739792 (Version 3)
Quarter: 2012Q4

REPORT INFORMATION
  Report Type: 
  Country: US (occurrence: US)
  Receive Date: 20120823
  Receipt Date: 20121115
  Transmission Date: 20130627
  Serious: Yes (Other)
  Sender: FDA-Public Use
  Company Number: US-UCBSA-063265

PATIENT
  Age: 69 Year
  Sex: Female
  Weight: 70.8 kg

DRUGS (6)
  1. CIMZIA [Suspect]
     Indication: CROHN^S DISEASE
     Dates: start: 20120720
  2. SPRIVA [Concomitant]
     Indication: EMPHYSEMA
     Dosage: INHALER
     Route: 055
  3. ATROVENT [Concomitant]
     Indication: EMPHYSEMA
     Dosage: 2 PUFFS
     Route: 055
  4. ALBUTEROL [Concomitant]
     Indication: EMPHYSEMA
     Dosage: NEBULIZER
     Route: 055
  5. ASPIRIN [Concomitant]
     Indication: CORONARY ARTERY DISEASE
     Route: 048
  6. LASIX [Concomitant]
     Indication: HYPERTENSION
     Route: 048

REACTIONS (7)
  - Chest pain [Recovered/Resolved]
  - Dyspnoea [Recovered/Resolved]
  - Abdominal pain upper [Not Recovered/Not Resolved]
  - Vomiting [Not Recovered/Not Resolved]
  - Decreased appetite [Not Recovered/Not Resolved]
  - Fatigue [Not Recovered/Not Resolved]
  - Muscular weakness [Not Recovered/Not Resolved]
